FAERS Safety Report 17750278 (Version 4)
Quarter: 2020Q3

REPORT INFORMATION
  Report Type: Spontaneous
  Country: US (occurrence: US)
  Receive Date: 20200506
  Receipt Date: 20200917
  Transmission Date: 20201102
  Serious: Yes (Other)
  Sender: FDA-Public Use
  Company Number: US-PFIZER INC-2019408356

PATIENT
  Age: 43 Year
  Sex: Male
  Weight: 127.01 kg

DRUGS (6)
  1. DILANTIN [Suspect]
     Active Substance: PHENYTOIN
     Dosage: UNK
     Dates: start: 2003
  2. PRADAXA [Concomitant]
     Active Substance: DABIGATRAN ETEXILATE MESYLATE
     Dosage: 300 MG, DAILY (150 MG CAPSULE, TWO PILLS A DAY)
  3. AMLODIPINE [Concomitant]
     Active Substance: AMLODIPINE BESYLATE
     Dosage: 10 MG, DAILY (5 MG, TWO A DAY)
  4. DILANTIN [Suspect]
     Active Substance: PHENYTOIN
     Dosage: 100 MG, 3X/DAY
     Route: 048
  5. METOPROLOL. [Concomitant]
     Active Substance: METOPROLOL
     Dosage: 25 MG, 2X/DAY
  6. DILANTIN [Suspect]
     Active Substance: PHENYTOIN
     Dosage: 700 MG, DAILY (TAKE 3 PILLS IN THE AM, 2 PILLS IN THE AFTERNOON AND 2 PILLS AT NIGHT/TAKES 7 A DAY)
     Route: 048

REACTIONS (2)
  - Prescribed overdose [Unknown]
  - Drug dependence [Unknown]
